FAERS Safety Report 25109665 (Version 2)
Quarter: 2025Q1

REPORT INFORMATION
  Report Type: Spontaneous
  Country: CN (occurrence: CN)
  Receive Date: 20250323
  Receipt Date: 20250327
  Transmission Date: 20250409
  Serious: Yes (Hospitalization, Other)
  Sender: ABBVIE
  Company Number: CN-ABBVIE-6192109

PATIENT
  Age: 32 Year
  Sex: Female
  Weight: 51 kg

DRUGS (2)
  1. BOTOX [Suspect]
     Active Substance: ONABOTULINUMTOXINA
     Indication: Muscle hypertrophy
     Route: 065
     Dates: start: 20250308, end: 20250308
  2. BOTOX [Suspect]
     Active Substance: ONABOTULINUMTOXINA
     Indication: Muscle hypertrophy
     Route: 065
     Dates: start: 20230329, end: 20230329

REACTIONS (3)
  - Botulism [Not Recovered/Not Resolved]
  - Hypoaesthesia [Unknown]
  - Swelling [Unknown]

NARRATIVE: CASE EVENT DATE: 20250310
